FAERS Safety Report 6300570-2 (Version None)
Quarter: 2009Q3

REPORT INFORMATION
  Report Type: 
  Country: None (occurrence: None)
  Receive Date: 20090806
  Receipt Date: 20090501
  Transmission Date: 20100115
  Serious: No
  Sender: FDA-Public Use
  Company Number: US-ABBOTT-09P-163-0571164-00

PATIENT
  Weight: 65.83 kg

DRUGS (1)
  1. DEPAKOTE ER [Suspect]
     Indication: CONVULSION
     Dosage: 750 MG MORNING AND 500 MG EVENING
     Dates: start: 20080101

REACTIONS (1)
  - MEDICATION RESIDUE [None]
